FAERS Safety Report 12528508 (Version 1)
Quarter: 2016Q3

REPORT INFORMATION
  Report Type: Spontaneous
  Country: JP (occurrence: JP)
  Receive Date: 20160705
  Receipt Date: 20160705
  Transmission Date: 20161109
  Serious: Yes (Hospitalization, Other)
  Sender: FDA-Public Use
  Company Number: JP-PFIZER INC-2015288447

PATIENT
  Age: 46 Year
  Sex: Female

DRUGS (1)
  1. RHEUMATREX [Suspect]
     Active Substance: METHOTREXATE SODIUM
     Indication: RHEUMATOID ARTHRITIS
     Dosage: 8 -12 MG/WEEK
     Route: 048
     Dates: end: 20150819

REACTIONS (6)
  - Diffuse large B-cell lymphoma [Unknown]
  - Hypercalcaemia [Unknown]
  - Osteolysis [Unknown]
  - Metastases to bone [Unknown]
  - Pathological fracture [Unknown]
  - Renal disorder [Unknown]

NARRATIVE: CASE EVENT DATE: 20150821
